FAERS Safety Report 5362742-3 (Version None)
Quarter: 2007Q2

REPORT INFORMATION
  Report Type: 
  Country: None (occurrence: None)
  Receive Date: 20070619
  Receipt Date: 20070615
  Transmission Date: 20071010
  Serious: Yes (Hospitalization)
  Sender: FDA-Public Use
  Company Number: DE-ABBOTT-07P-062-0371620-00

PATIENT
  Sex: Male

DRUGS (1)
  1. ERGENYL TABLETS PR [Suspect]
     Indication: EPILEPSY
     Route: 048

REACTIONS (3)
  - DRUG INEFFECTIVE [None]
  - DRUG LEVEL DECREASED [None]
  - EPILEPSY [None]
